FAERS Safety Report 4444028-4 (Version None)
Quarter: 2004Q3

REPORT INFORMATION
  Report Type: 
  Country: None (occurrence: None)
  Receive Date: 20040729
  Receipt Date: 20040113
  Transmission Date: 20050211
  Serious: Yes (Other)
  Sender: FDA-Public Use
  Company Number: US-JNJFOC-20031200017

PATIENT
  Age: 84 Year
  Sex: Female

DRUGS (5)
  1. RISPERDAL [Suspect]
     Indication: PARANOIA
     Dosage: 0.5 MG, IN 1 DAY, ORAL
     Route: 048
     Dates: start: 20010423, end: 20031124
  2. LORAZEPAM [Concomitant]
  3. DIOVAN [Concomitant]
  4. DILTIAZEM [Concomitant]
  5. PROZAC [Concomitant]

REACTIONS (3)
  - ATRIAL FLUTTER [None]
  - DIABETES MELLITUS [None]
  - VAGINITIS [None]
